FAERS Safety Report 15127988 (Version 2)
Quarter: 2018Q3

REPORT INFORMATION
  Report Type: Spontaneous
  Country: DE (occurrence: DE)
  Receive Date: 20180710
  Receipt Date: 20180803
  Transmission Date: 20181010
  Serious: Yes (Hospitalization, Other)
  Sender: FDA-Public Use
  Company Number: DE-EMD SERONO-9034436

PATIENT
  Age: 62 Year
  Sex: Female
  Weight: 67 kg

DRUGS (1)
  1. REBIF [Suspect]
     Active Substance: INTERFERON BETA-1A
     Indication: RELAPSING MULTIPLE SCLEROSIS
     Route: 058
     Dates: start: 20031009, end: 20180504

REACTIONS (33)
  - Peripheral arterial occlusive disease [Recovering/Resolving]
  - Bilirubin conjugated increased [Recovering/Resolving]
  - Drug-induced liver injury [Recovering/Resolving]
  - Urine ketone body present [Recovering/Resolving]
  - Urine bilirubin increased [Recovering/Resolving]
  - Blood immunoglobulin G increased [Recovering/Resolving]
  - International normalised ratio increased [Recovering/Resolving]
  - Gastrointestinal examination abnormal [Recovering/Resolving]
  - Depression [Recovering/Resolving]
  - Abdominal discomfort [Recovering/Resolving]
  - Nausea [Recovering/Resolving]
  - Antinuclear antibody positive [Recovering/Resolving]
  - Rosacea [Recovering/Resolving]
  - Ascites [Recovering/Resolving]
  - Hypergammaglobulinaemia [Recovering/Resolving]
  - Autoimmune hepatitis [Recovering/Resolving]
  - Osteoarthritis [Recovering/Resolving]
  - Laboratory test abnormal [Recovering/Resolving]
  - Multiple sclerosis relapse [Recovering/Resolving]
  - Multiple sclerosis [Recovering/Resolving]
  - Jaundice [Recovering/Resolving]
  - Spinal disorder [Recovering/Resolving]
  - Abdominal pain [Recovering/Resolving]
  - Dizziness [Recovering/Resolving]
  - Osteochondrosis [Recovering/Resolving]
  - Autoimmune thyroiditis [Recovering/Resolving]
  - White blood cells urine positive [Recovering/Resolving]
  - Urobilinogen urine increased [Recovering/Resolving]
  - Hepatic cyst [Recovering/Resolving]
  - Blood bilirubin increased [Recovering/Resolving]
  - Urine osmolarity increased [Recovering/Resolving]
  - General physical health deterioration [Recovering/Resolving]
  - Hepatic enzyme increased [Recovering/Resolving]

NARRATIVE: CASE EVENT DATE: 2018
